FAERS Safety Report 10668284 (Version 9)
Quarter: 2015Q3

REPORT INFORMATION
  Report Type: Spontaneous
  Country: US (occurrence: US)
  Receive Date: 20141222
  Receipt Date: 20150917
  Transmission Date: 20151125
  Serious: Yes (Other)
  Sender: FDA-Public Use
  Company Number: US-009507513-1107USA02862

PATIENT
  Sex: Male
  Weight: 60.32 kg

DRUGS (1)
  1. PROPECIA [Suspect]
     Active Substance: FINASTERIDE
     Indication: ALOPECIA
     Dosage: 1 MG, QD
     Route: 048
     Dates: start: 200907, end: 20090810

REACTIONS (68)
  - Asthenia [Unknown]
  - Food allergy [Not Recovered/Not Resolved]
  - Prostatitis [Unknown]
  - Skin discolouration [Unknown]
  - Penile curvature [Unknown]
  - Libido decreased [Unknown]
  - Depression [Recovered/Resolved]
  - Dyspepsia [Unknown]
  - Hypocholesterolaemia [Unknown]
  - Haematochezia [Unknown]
  - Vitamin B12 increased [Unknown]
  - Deafness [Not Recovered/Not Resolved]
  - Dyspepsia [Unknown]
  - Fatigue [Not Recovered/Not Resolved]
  - Penile size reduced [Unknown]
  - Hepatic enzyme increased [Unknown]
  - Testicular disorder [Unknown]
  - Affective disorder [Unknown]
  - Varicocele [Unknown]
  - Tinea versicolour [Unknown]
  - Headache [Unknown]
  - Temperature intolerance [Unknown]
  - Loss of libido [Not Recovered/Not Resolved]
  - Testicular atrophy [Unknown]
  - Lipoprotein deficiency [Unknown]
  - Pectus excavatum [Unknown]
  - Skin lesion [Unknown]
  - Drug hypersensitivity [Unknown]
  - Gonorrhoea [Unknown]
  - Insomnia [Not Recovered/Not Resolved]
  - Anxiety [Not Recovered/Not Resolved]
  - Autoimmune thyroiditis [Unknown]
  - Perineal pain [Recovered/Resolved]
  - Dizziness [Unknown]
  - Blood oestrogen increased [Unknown]
  - Blood oestrogen increased [Unknown]
  - Visual impairment [Unknown]
  - Constipation [Unknown]
  - Erectile dysfunction [Not Recovered/Not Resolved]
  - Sleep disorder [Not Recovered/Not Resolved]
  - Cognitive disorder [Unknown]
  - Hypohidrosis [Not Recovered/Not Resolved]
  - Feeling abnormal [Unknown]
  - Paronychia [Unknown]
  - Wisdom teeth removal [Unknown]
  - Diarrhoea [Unknown]
  - Underweight [Unknown]
  - Disturbance in attention [Unknown]
  - Carbohydrate intolerance [Unknown]
  - Sexually transmitted disease [Unknown]
  - Hypotonia [Recovering/Resolving]
  - Feeling abnormal [Recovered/Resolved]
  - Muscle strain [Unknown]
  - Genital hypoaesthesia [Unknown]
  - Thyroid hormones increased [Unknown]
  - Scratch [Unknown]
  - Dizziness postural [Unknown]
  - Nasal congestion [Unknown]
  - Hypochondriasis [Unknown]
  - Stress [Unknown]
  - Sexual dysfunction [Not Recovered/Not Resolved]
  - Epididymitis [Not Recovered/Not Resolved]
  - Cardiovascular insufficiency [Unknown]
  - Kyphosis [Unknown]
  - Acne [Unknown]
  - Gynaecomastia [Unknown]
  - Testicular pain [Not Recovered/Not Resolved]
  - Tinnitus [Unknown]

NARRATIVE: CASE EVENT DATE: 2009
